FAERS Safety Report 11417669 (Version 5)
Quarter: 2017Q2

REPORT INFORMATION
  Report Type: Report from Study
  Country: None (occurrence: NL)
  Receive Date: 20150825
  Receipt Date: 20170504
  Transmission Date: 20170829
  Serious: Yes (Hospitalization)
  Sender: FDA-Public Use
  Company Number: NL-ABBVIE-14P-114-1279823-00

PATIENT
  Age: 82 Year
  Sex: Male
  Weight: 69 kg

DRUGS (16)
  1. LUCRIN [Suspect]
     Active Substance: LEUPROLIDE ACETATE
     Route: 058
  2. LUCRIN [Suspect]
     Active Substance: LEUPROLIDE ACETATE
     Route: 058
  3. SILODYX 8 MG [Concomitant]
     Indication: PROSTATIC DISORDER
     Route: 048
  4. ISOSORBIDEDINITRAAT [Concomitant]
     Indication: PRODUCT USED FOR UNKNOWN INDICATION
     Route: 048
  5. PERINDOPRIL [Concomitant]
     Active Substance: PERINDOPRIL
     Indication: HYPERTENSION
     Route: 048
  6. LUCRIN [Suspect]
     Active Substance: LEUPROLIDE ACETATE
     Indication: PROSTATE CANCER
     Route: 058
     Dates: start: 20140319
  7. LUCRIN [Suspect]
     Active Substance: LEUPROLIDE ACETATE
     Route: 058
  8. AVODART 0.5MG [Concomitant]
     Indication: PROSTATIC DISORDER
     Route: 048
  9. ATORVASTATINE [Concomitant]
     Active Substance: ATORVASTATIN
     Indication: PRODUCT USED FOR UNKNOWN INDICATION
     Route: 048
  10. METOPROLOL. [Concomitant]
     Active Substance: METOPROLOL
     Indication: HYPERTENSION
     Route: 048
  11. LUCRIN [Suspect]
     Active Substance: LEUPROLIDE ACETATE
     Route: 058
  12. DUTASTERIDE. [Concomitant]
     Active Substance: DUTASTERIDE
     Indication: PROSTATIC DISORDER
     Route: 048
  13. TICAGRELOR [Concomitant]
     Active Substance: TICAGRELOR
     Indication: PRODUCT USED FOR UNKNOWN INDICATION
     Route: 048
  14. PRAVASTATIN. [Concomitant]
     Active Substance: PRAVASTATIN
     Indication: PRODUCT USED FOR UNKNOWN INDICATION
     Route: 048
  15. CARBASALATE CALCIUM [Concomitant]
     Active Substance: CARBASPIRIN
     Indication: PRODUCT USED FOR UNKNOWN INDICATION
     Route: 048
  16. PANTOPRAZOL [Concomitant]
     Active Substance: PANTOPRAZOLE SODIUM
     Indication: PRODUCT USED FOR UNKNOWN INDICATION
     Route: 048

REACTIONS (7)
  - Dizziness [Not Recovered/Not Resolved]
  - Hyperhidrosis [Not Recovered/Not Resolved]
  - Weight increased [Not Recovered/Not Resolved]
  - Hot flush [Not Recovered/Not Resolved]
  - Palpitations [Recovered/Resolved]
  - Prostatic specific antigen increased [Not Recovered/Not Resolved]
  - Vascular graft [Recovered/Resolved]

NARRATIVE: CASE EVENT DATE: 201403
